FAERS Safety Report 8050356-6 (Version None)
Quarter: 2011Q4

REPORT INFORMATION
  Report Type: 
  Country: None (occurrence: None)
  Receive Date: 20111229
  Receipt Date: 20111214
  Transmission Date: 20120403
  Serious: Yes (Other)
  Sender: FDA-Public Use
  Company Number: 2011PROUSA00826

PATIENT
  Age: 62 Year
  Sex: Male

DRUGS (9)
  1. TRELSTAR [Concomitant]
  2. DIAZIDE /00007602/ (HYDRALAZINE HYDROCHLORIDE) [Concomitant]
  3. PROVENGE [Suspect]
     Indication: PROSTATE CANCER METASTATIC
     Dosage: 250 ML, SINGLE, INTRAVENOUS
     Route: 042
     Dates: start: 20111128, end: 20111128
  4. INSULIN [Concomitant]
  5. DENOSUMAB (DENOSUMAB) [Concomitant]
  6. METFORMIN HCL [Concomitant]
  7. IBUPROFEN (IBUPROFEN) [Concomitant]
  8. LISINOPRIL [Concomitant]
  9. PROVENGE [Suspect]
     Dosage: 250 ML, SINGLE, INTRAVENOUS
     Route: 042
     Dates: start: 20111212, end: 20111212

REACTIONS (3)
  - MEMORY IMPAIRMENT [None]
  - NUCLEAR MAGNETIC RESONANCE IMAGING BRAIN ABNORMAL [None]
  - TRANSIENT ISCHAEMIC ATTACK [None]
